FAERS Safety Report 7155949-6 (Version None)
Quarter: 2010Q4

REPORT INFORMATION
  Report Type: 
  Country: None (occurrence: None)
  Receive Date: 20101214
  Receipt Date: 20101130
  Transmission Date: 20110411
  Serious: Yes (Hospitalization, Other)
  Sender: FDA-Public Use
  Company Number: US-CELGENEUS-163-21880-10072436

PATIENT
  Sex: Female
  Weight: 59.02 kg

DRUGS (27)
  1. REVLIMID [Suspect]
     Indication: MYELODYSPLASTIC SYNDROME
     Route: 048
     Dates: start: 20060323
  2. REVLIMID [Suspect]
     Route: 048
     Dates: start: 20061103, end: 20061229
  3. REVLIMID [Suspect]
     Route: 048
     Dates: start: 20070209, end: 20070514
  4. REVLIMID [Suspect]
     Route: 048
     Dates: start: 20070514, end: 20080505
  5. REVLIMID [Suspect]
     Route: 048
     Dates: start: 20090102, end: 20090102
  6. ORTHO-EST [Concomitant]
     Route: 048
  7. MULTI-VITAMINS [Concomitant]
     Route: 048
  8. CALTRATE WITH VITAMIN D [Concomitant]
     Route: 065
  9. CALTRATE WITH VITAMIN D [Concomitant]
     Dosage: 600/200MG
     Route: 065
  10. VITAMIN D [Concomitant]
     Route: 065
  11. LOVASTATIN [Concomitant]
     Route: 048
  12. ALENDRONATE [Concomitant]
     Route: 065
  13. FUROSEMIDE [Concomitant]
     Dosage: 50MG IN AM, 30MG IN PM
     Route: 048
  14. FUROSEMIDE [Concomitant]
     Dosage: 60MG IN AM, 40 MG AT NOON
     Route: 048
  15. PANTOPRAZOLE [Concomitant]
     Route: 048
  16. HYDROCODONE BITARTRATE + ACETAMINOPHEN [Concomitant]
     Dosage: 5/325MG
     Route: 065
  17. LEVOTHYROXINE SODIUM [Concomitant]
     Route: 048
  18. ASPIRIN [Concomitant]
     Route: 048
  19. GLUCOSAMINE CHONDROITIN [Concomitant]
     Dosage: 750/600MG
     Route: 048
  20. NYSTATIN/TRIAMCINOLONE [Concomitant]
     Route: 061
  21. SULFAMETHOXAZOLE AND TRIMETHOPRIM DOUBLE STRENGTH [Concomitant]
     Route: 048
  22. FOSAMAX PLUS D [Concomitant]
     Route: 048
  23. MUPIROCIN [Concomitant]
     Route: 061
  24. ESTROPIPATE [Concomitant]
     Route: 065
  25. MICRO-K [Concomitant]
     Route: 048
  26. PRILOSEC [Concomitant]
     Route: 065
  27. EXTRA STRENGTH APAP [Concomitant]
     Route: 065

REACTIONS (15)
  - ABSCESS [None]
  - ACUTE MYELOID LEUKAEMIA [None]
  - ANAEMIA MACROCYTIC [None]
  - BRONCHITIS [None]
  - CARDIAC FAILURE CONGESTIVE [None]
  - DIZZINESS POSTURAL [None]
  - DRUG INEFFECTIVE [None]
  - HAEMOGLOBIN DECREASED [None]
  - OEDEMA PERIPHERAL [None]
  - PHLEBITIS SUPERFICIAL [None]
  - PLATELET COUNT INCREASED [None]
  - PNEUMONIA [None]
  - SCIATICA [None]
  - STASIS DERMATITIS [None]
  - WHITE BLOOD CELL COUNT DECREASED [None]
